FAERS Safety Report 5942293-5 (Version None)
Quarter: 2008Q4

REPORT INFORMATION
  Report Type: 
  Country: None (occurrence: None)
  Receive Date: 20081105
  Receipt Date: 20081024
  Transmission Date: 20090506
  Serious: Yes (Other)
  Sender: FDA-Public Use
  Company Number: AU-ELI_LILLY_AND_COMPANY-AU200810000578

PATIENT
  Age: 85 Year
  Sex: Male

DRUGS (10)
  1. CYMBALTA [Suspect]
     Indication: HYPOMANIA
     Dosage: 60 MG, UNKNOWN
     Route: 065
     Dates: start: 20080902, end: 20080915
  2. CYMBALTA [Suspect]
     Dosage: 30 MG, UNKNOWN
     Route: 065
     Dates: start: 20080916, end: 20081012
  3. CYMBALTA [Suspect]
     Dosage: UNK, ALTERNATING 30 MG - 60 MG
     Route: 065
     Dates: start: 20081013
  4. ZYPREXA [Suspect]
     Dosage: 2.5 MG, EACH EVENING
     Route: 065
  5. EPILIM [Concomitant]
     Dosage: 500 D/F, DAILY (1/D)
     Route: 065
  6. BICOR [Concomitant]
  7. CLOPIDOGREL [Concomitant]
     Indication: BIPOLAR DISORDER
     Dosage: 75 MG, DAILY (1/D)
     Route: 065
  8. FISH OIL [Concomitant]
  9. LASIX [Concomitant]
     Dosage: 40 MG, HALF DAYS
     Route: 065
  10. LIPITOR [Concomitant]
     Dosage: 40 MG, EACH EVENING
     Route: 065

REACTIONS (1)
  - MANIA [None]
